FAERS Safety Report 7815921-7 (Version None)
Quarter: 2011Q4

REPORT INFORMATION
  Report Type: 
  Country: None (occurrence: None)
  Receive Date: 20111014
  Receipt Date: 20111011
  Transmission Date: 20120403
  Serious: Yes (Other)
  Sender: FDA-Public Use
  Company Number: GB-PFIZER INC-2011234725

PATIENT
  Age: 46 Year
  Sex: Female

DRUGS (26)
  1. AMBISOME [Suspect]
     Dosage: 1000 MG
     Route: 042
     Dates: start: 20110831, end: 20110831
  2. CODEINE [Concomitant]
     Dosage: 30 MG
     Route: 048
     Dates: start: 20110817, end: 20110820
  3. DAUNORUBICIN HCL [Suspect]
     Indication: MYELODYSPLASTIC SYNDROME
  4. PIPERACILLIN AND TAZOBACTAM [Suspect]
     Dosage: 4.5 G
     Route: 042
     Dates: start: 20110822, end: 20110825
  5. VANCOMYCIN [Suspect]
     Dosage: 1 G
     Dates: start: 20110904, end: 20110909
  6. ALLOPURINOL [Concomitant]
     Dosage: 300 MG
     Route: 048
     Dates: start: 20110828, end: 20110908
  7. GEMTUZUMAB OZOGAMICIN [Suspect]
     Indication: ACUTE MYELOID LEUKAEMIA
     Dosage: 3 MG, FREQUENCY UNKNOWN
     Dates: start: 20110819, end: 20110828
  8. TRANEXAMIC ACID [Concomitant]
     Dosage: 500 MG
     Route: 048
     Dates: start: 20110831, end: 20110908
  9. ANTI-D IMMUNOGLOBULIN [Concomitant]
     Dosage: 250 IU
     Route: 058
     Dates: start: 20110902, end: 20110902
  10. PARACETAMOL [Concomitant]
     Dosage: 1G
     Route: 048
     Dates: start: 20110817, end: 20110828
  11. GEMTUZUMAB OZOGAMICIN [Suspect]
     Indication: MYELODYSPLASTIC SYNDROME
  12. CYTARABINE [Suspect]
     Indication: MYELODYSPLASTIC SYNDROME
  13. ETOPOSIDE [Suspect]
     Indication: ACUTE MYELOID LEUKAEMIA
     Dosage: UNK
     Dates: start: 20110819, end: 20110828
  14. RANITIDINE [Concomitant]
     Dosage: 150 MG
     Dates: start: 20110908, end: 20110912
  15. ONDANSETRON [Concomitant]
     Dosage: 8 MG
     Route: 048
     Dates: start: 20110822, end: 20110828
  16. OMEPRAZOLE [Concomitant]
     Dosage: 40 MG
     Dates: start: 20110820, end: 20110908
  17. DOCUSATE SODIUM [Concomitant]
     Dosage: 20 MG
     Route: 048
     Dates: start: 20110823, end: 20110914
  18. LORAZEPAM [Concomitant]
     Dosage: 1 MG
     Route: 048
     Dates: start: 20110914, end: 20110914
  19. ETOPOSIDE [Suspect]
     Indication: MYELODYSPLASTIC SYNDROME
  20. NORETHINDRONE [Suspect]
     Dosage: 5 G
     Dates: start: 20110818
  21. MEROPENIN [Suspect]
     Dosage: 1 G
     Dates: start: 20110905, end: 20110910
  22. CYCLIZINE [Concomitant]
     Dosage: 150 MG
     Route: 042
     Dates: start: 20110903, end: 20110914
  23. ACICLOVIR [Concomitant]
     Dosage: 900  MG
     Route: 048
  24. ORAMORPH SR [Concomitant]
     Dosage: 5-10MG
     Route: 042
     Dates: start: 20110822, end: 20110823
  25. CYTARABINE [Suspect]
     Indication: ACUTE MYELOID LEUKAEMIA
     Dosage: UNK
     Dates: start: 20110819, end: 20110828
  26. DAUNORUBICIN HCL [Suspect]
     Indication: ACUTE MYELOID LEUKAEMIA
     Dosage: UNK
     Dates: start: 20110819, end: 20110828

REACTIONS (2)
  - ALANINE AMINOTRANSFERASE INCREASED [None]
  - PLATELET COUNT INCREASED [None]
